FAERS Safety Report 25897469 (Version 2)
Quarter: 2025Q4

REPORT INFORMATION
  Report Type: Report from Study
  Country: US (occurrence: US)
  Receive Date: 20251008
  Receipt Date: 20251107
  Transmission Date: 20260117
  Serious: Yes (Other)
  Sender: GILEAD
  Company Number: US-GILEAD-2025-0731256

PATIENT
  Age: 62 Year
  Sex: Female

DRUGS (1)
  1. TENOFOVIR ALAFENAMIDE [Suspect]
     Active Substance: TENOFOVIR ALAFENAMIDE
     Indication: Product used for unknown indication
     Dosage: UNK
     Route: 065

REACTIONS (7)
  - Hepatic cancer [Unknown]
  - Lumbar vertebral fracture [Unknown]
  - Product use issue [Unknown]
  - Gait disturbance [Unknown]
  - Pain in extremity [Unknown]
  - Nausea [Unknown]
  - Product dose omission issue [Unknown]
